FAERS Safety Report 7375918-0 (Version None)
Quarter: 2011Q1

REPORT INFORMATION
  Report Type: 
  Country: None (occurrence: None)
  Receive Date: 20110317
  Receipt Date: 20110310
  Transmission Date: 20110831
  Serious: Yes (Hospitalization, Other)
  Sender: FDA-Public Use
  Company Number: TRP_07596_2011

PATIENT
  Age: 73 Year
  Sex: Male

DRUGS (9)
  1. AMLODIPINE BESILATE [Concomitant]
  2. DOXAZOSIN MESYLATE [Concomitant]
  3. CLONIDINE HYDROCHLORIDE [Concomitant]
  4. PEGINTERFERON ALFA-2B [Suspect]
     Indication: HEPATITIS C
     Dosage: 100 UG, 80 UG,
     Dates: start: 20060201, end: 20060101
  5. PEGINTERFERON ALFA-2B [Suspect]
     Indication: HEPATITIS C
     Dosage: 100 UG, 80 UG,
     Dates: start: 20060101, end: 20060725
  6. URSODESOXYCHOLIC ACID [Concomitant]
  7. RIBAVIRIN [Suspect]
     Indication: HEPATITIS C
     Dosage: 800 MG, 600 MG, 400 MG,
     Dates: start: 20060101, end: 20060725
  8. RIBAVIRIN [Suspect]
     Indication: HEPATITIS C
     Dosage: 800 MG, 600 MG, 400 MG,
     Dates: start: 20060201, end: 20060101
  9. RIBAVIRIN [Suspect]
     Indication: HEPATITIS C
     Dosage: 800 MG, 600 MG, 400 MG,
     Dates: start: 20060101, end: 20060101

REACTIONS (15)
  - DRUG ERUPTION [None]
  - INJECTION SITE SWELLING [None]
  - SKIN LESION [None]
  - INJECTION SITE ERYTHEMA [None]
  - SKIN EROSION [None]
  - VIRAEMIA [None]
  - PYREXIA [None]
  - BLISTER [None]
  - PRURITUS [None]
  - TRANSAMINASES INCREASED [None]
  - HEPATITIS C RNA INCREASED [None]
  - SKIN NECROSIS [None]
  - MACULE [None]
  - DERMATITIS BULLOUS [None]
  - INJECTION SITE PRURITUS [None]
